FAERS Safety Report 14015064 (Version 2)
Quarter: 2024Q4

REPORT INFORMATION
  Report Type: Spontaneous
  Country: KR (occurrence: KR)
  Receive Date: 20170927
  Receipt Date: 20241125
  Transmission Date: 20250114
  Serious: Yes (Other)
  Sender: ROCHE
  Company Number: KR-002147023-PHHY2017KR139737

PATIENT

DRUGS (1)
  1. LUCENTIS [Suspect]
     Active Substance: RANIBIZUMAB
     Indication: Product used for unknown indication
     Dosage: 0.05CC
     Route: 065

REACTIONS (2)
  - Endophthalmitis [Recovering/Resolving]
  - Eye inflammation [Recovering/Resolving]
